FAERS Safety Report 6151567-7 (Version None)
Quarter: 2009Q2

REPORT INFORMATION
  Report Type: 
  Country: None (occurrence: None)
  Receive Date: 20090410
  Receipt Date: 20090403
  Transmission Date: 20091009
  Serious: Yes (Other)
  Sender: FDA-Public Use
  Company Number: CA-ASTRAZENECA-2009UW04782

PATIENT
  Sex: Female

DRUGS (1)
  1. SYMBICORT [Suspect]
     Indication: ASTHMA
     Dosage: ONE PUFF BID
     Route: 055
     Dates: start: 20070501

REACTIONS (2)
  - THROAT IRRITATION [None]
  - THROAT TIGHTNESS [None]
